FAERS Safety Report 14022288 (Version 1)
Quarter: 2017Q3

REPORT INFORMATION
  Report Type: Spontaneous
  Country: US (occurrence: US)
  Receive Date: 20170928
  Receipt Date: 20170928
  Transmission Date: 20171128
  Serious: Yes (Other)
  Sender: FDA-Public Use
  Company Number: US-009507513-1709USA011971

PATIENT

DRUGS (4)
  1. DORIPENEM. [Suspect]
     Active Substance: DORIPENEM
     Indication: KLEBSIELLA BACTERAEMIA
  2. INVANZ [Suspect]
     Active Substance: ERTAPENEM SODIUM
     Indication: SALVAGE THERAPY
     Dosage: 1 G, ONCE DAILY
  3. INVANZ [Suspect]
     Active Substance: ERTAPENEM SODIUM
     Indication: KLEBSIELLA BACTERAEMIA
  4. DORIPENEM. [Suspect]
     Active Substance: DORIPENEM
     Indication: SALVAGE THERAPY
     Dosage: 2G, 4-H INFUSION EVERY 8 H

REACTIONS (2)
  - Off label use [Unknown]
  - Seizure [Recovered/Resolved]
